FAERS Safety Report 26138886 (Version 1)
Quarter: 2025Q4

REPORT INFORMATION
  Report Type: Other
  Country: EU (occurrence: EU)
  Receive Date: 20251210
  Receipt Date: 20251210
  Transmission Date: 20260117
  Serious: Yes (Death)
  Sender: ZYDUS PHARM
  Company Number: None

PATIENT

DRUGS (5)
  1. RISPERIDONE [Suspect]
     Active Substance: RISPERIDONE
     Indication: Agitation
     Dosage: 0.5 MILLIGRAM DAILY
     Route: 048
     Dates: start: 20250823, end: 20250824
  2. DIAZEPAM [Suspect]
     Active Substance: DIAZEPAM
     Indication: Agitation
     Dosage: 2 DOSAGE FORM EVERY 4 HOURS
     Route: 048
     Dates: start: 20250808, end: 20250824
  3. ELIQUIS [Suspect]
     Active Substance: APIXABAN
     Indication: Thrombosis prophylaxis
     Dosage: 2 DOSAGE FORM DAILY
     Route: 048
     Dates: start: 20250811, end: 20250824
  4. OXAZEPAM [Suspect]
     Active Substance: OXAZEPAM
     Indication: Agitation
     Dosage: 2 DOSAGE FORM
     Route: 048
     Dates: start: 20250811, end: 20250824
  5. ZOPICLONE [Suspect]
     Active Substance: ZOPICLONE
     Indication: Agitation
     Dosage: 1 DOSAGE FORM DAILY
     Route: 048
     Dates: start: 20250812, end: 20250824

REACTIONS (1)
  - Fall [Fatal]

NARRATIVE: CASE EVENT DATE: 20250825
